FAERS Safety Report 17961575 (Version 1)
Quarter: 2020Q2

REPORT INFORMATION
  Report Type: Spontaneous
  Country: US (occurrence: US)
  Receive Date: 20200629
  Receipt Date: 20200629
  Transmission Date: 20200714
  Serious: Yes (Other)
  Sender: FDA-Public Use
  Company Number: US-ROCHE-2558371

PATIENT
  Age: 72 Year
  Sex: Male
  Weight: 238 kg

DRUGS (1)
  1. XELODA [Suspect]
     Active Substance: CAPECITABINE
     Indication: COLON CANCER STAGE III
     Route: 048

REACTIONS (2)
  - Perineal rash [Unknown]
  - Diarrhoea [Unknown]
